FAERS Safety Report 8306020-9 (Version None)
Quarter: 2012Q2

REPORT INFORMATION
  Report Type: 
  Country: None (occurrence: None)
  Receive Date: 20120423
  Receipt Date: 20120411
  Transmission Date: 20120825
  Serious: Yes (Hospitalization, Other)
  Sender: FDA-Public Use
  Company Number: FI-ROCHE-1058704

PATIENT
  Sex: Female

DRUGS (11)
  1. CALCICHEW D3 [Concomitant]
     Dosage: CHEWABLE TABLET
     Route: 048
  2. ENALAPRIL MALEATE [Concomitant]
     Route: 048
  3. FUROSEMIDE [Concomitant]
     Route: 048
  4. LEVOTHYROXINE SODIUM [Concomitant]
     Route: 048
  5. PREDNISOLONE [Concomitant]
     Route: 048
  6. DIFORMIN RETARD [Concomitant]
     Dosage: PROLONGED-RELEASE TABLET
     Route: 048
  7. ZOLEDRONOC ACID [Concomitant]
     Dosage: SOLUTION FOR INFUSION
     Route: 042
  8. AVASTIN [Suspect]
     Indication: AGE-RELATED MACULAR DEGENERATION
     Dosage: AVASTIN 25 MG/ML CONCENTRATE FOR SOLUTION FOR INFUSION
     Route: 050
     Dates: start: 20120224, end: 20120224
  9. SPIRIVA RESPIMAT [Concomitant]
     Dosage: INHALATION LIQUID
     Route: 055
  10. CITALOPRAM HYDROBROMIDE [Concomitant]
     Dosage: FILM-COATED TABLET
     Route: 048
  11. SIMVASTATIN [Concomitant]
     Dosage: FILM-COATED TABLET
     Route: 048

REACTIONS (2)
  - TRANSMISSION OF AN INFECTIOUS AGENT VIA A MEDICINAL PRODUCT [None]
  - ENDOPHTHALMITIS [None]
